FAERS Safety Report 9952856 (Version 1)
Quarter: 2014Q1

REPORT INFORMATION
  Report Type: Spontaneous
  Country: CL (occurrence: CL)
  Receive Date: 20140304
  Receipt Date: 20140304
  Transmission Date: 20141002
  Serious: Yes (Other)
  Sender: FDA-Public Use
  Company Number: CL-PFIZER INC-2014059427

PATIENT
  Age: 85 Year
  Sex: Female

DRUGS (1)
  1. XALATAN [Suspect]
     Indication: GLAUCOMA
     Dosage: 1 DROP (EACH EYE), 2X/DAY
     Route: 047
     Dates: start: 2006

REACTIONS (4)
  - Cataract [Unknown]
  - Ear disorder [Not Recovered/Not Resolved]
  - Eye colour change [Recovered/Resolved]
  - Off label use [Not Recovered/Not Resolved]
